FAERS Safety Report 9744640 (Version 1)
Quarter: 2013Q4

REPORT INFORMATION
  Report Type: Spontaneous
  Country: FR (occurrence: FR)
  Receive Date: 20131210
  Receipt Date: 20131210
  Transmission Date: 20140711
  Serious: Yes (Hospitalization)
  Sender: FDA-Public Use
  Company Number: FR-ASTRAZENECA-2013SE88661

PATIENT
  Age: 20747 Day
  Sex: Female

DRUGS (5)
  1. INEXIUM [Suspect]
     Route: 048
     Dates: start: 201308, end: 20131028
  2. KEPPRA [Suspect]
     Route: 048
     Dates: start: 201308, end: 20131025
  3. TEMODAL [Suspect]
     Indication: GLIOBLASTOMA
     Route: 048
     Dates: start: 20130826, end: 20131004
  4. ZOPHREN [Concomitant]
     Dates: start: 20130826
  5. SOLUPRED [Concomitant]
     Dates: start: 201308

REACTIONS (6)
  - Febrile bone marrow aplasia [Unknown]
  - Dysphonia [Unknown]
  - Upper respiratory tract inflammation [Unknown]
  - Furuncle [Unknown]
  - Agranulocytosis [Recovered/Resolved]
  - Platelet count decreased [Unknown]
